FAERS Safety Report 21434094 (Version 1)
Quarter: 2022Q4

REPORT INFORMATION
  Report Type: Spontaneous
  Country: CN (occurrence: CN)
  Receive Date: 20221010
  Receipt Date: 20221010
  Transmission Date: 20230112
  Serious: Yes (Other)
  Sender: FDA-Public Use
  Company Number: CN-SA-SAC20221006001116

PATIENT
  Age: 4 Year
  Sex: Male
  Weight: 19 kg

DRUGS (2)
  1. THYMOGLOBULINE [Suspect]
     Active Substance: LAPINE T-LYMPHOCYTE IMMUNE GLOBULIN
     Indication: Leukaemia
     Dosage: 50 MG, 1X
     Route: 041
     Dates: start: 20220912, end: 20220913
  2. SODIUM CHLORIDE [Concomitant]
     Active Substance: SODIUM CHLORIDE
     Indication: Vehicle solution use
     Dosage: 250 ML
     Route: 042
     Dates: start: 20220912, end: 20220913

REACTIONS (1)
  - Hyperpyrexia [Recovering/Resolving]

NARRATIVE: CASE EVENT DATE: 20220912
